FAERS Safety Report 7453108-0 (Version None)
Quarter: 2011Q2

REPORT INFORMATION
  Report Type: 
  Country: None (occurrence: None)
  Receive Date: 20110502
  Receipt Date: 20101115
  Transmission Date: 20111010
  Serious: No
  Sender: FDA-Public Use
  Company Number: CA-ASTRAZENECA-2010SE54519

PATIENT
  Sex: Female

DRUGS (3)
  1. VENTOLIN [Concomitant]
     Indication: ASTHMA
  2. NEXIUM [Suspect]
     Indication: DYSPEPSIA
     Route: 048
     Dates: start: 20010101, end: 20100901
  3. IRON [Concomitant]
     Indication: ANAEMIA

REACTIONS (5)
  - FLATULENCE [None]
  - BLOOD IRON ABNORMAL [None]
  - WRONG DRUG ADMINISTERED [None]
  - DRUG DOSE OMISSION [None]
  - DYSPEPSIA [None]
